FAERS Safety Report 7120779-8 (Version None)
Quarter: 2010Q4

REPORT INFORMATION
  Report Type: 
  Country: None (occurrence: None)
  Receive Date: 20101124
  Receipt Date: 20101109
  Transmission Date: 20110411
  Serious: Yes (Hospitalization)
  Sender: FDA-Public Use
  Company Number: US-CUBIST-2010S1001696

PATIENT
  Age: 47 Year
  Sex: Male

DRUGS (4)
  1. CUBICIN [Suspect]
     Indication: STAPHYLOCOCCAL BACTERAEMIA
  2. CUBICIN [Suspect]
     Indication: OSTEOMYELITIS
  3. VANCOMYCIN [Concomitant]
     Indication: OSTEOMYELITIS
  4. CEFTRIAXONE [Concomitant]
     Indication: PRODUCT USED FOR UNKNOWN INDICATION

REACTIONS (3)
  - ANTIMICROBIAL SUSCEPTIBILITY TEST RESISTANT [None]
  - SEPTIC SHOCK [None]
  - STREPTOCOCCAL BACTERAEMIA [None]
